FAERS Safety Report 9210485 (Version 2)
Quarter: 2013Q2

REPORT INFORMATION
  Report Type: Other
  Country: JP (occurrence: JP)
  Receive Date: 20130404
  Receipt Date: 20130613
  Transmission Date: 20140414
  Serious: Yes (Other)
  Sender: FDA-Public Use
  Company Number: JP-BRISTOL-MYERS SQUIBB COMPANY-18714063

PATIENT
  Age: 68 Year
  Sex: Male

DRUGS (1)
  1. TRIAMCINOLONE ACE INJ [Suspect]
     Dosage: 2MG INJ

REACTIONS (1)
  - Gastric ulcer [Unknown]
